FAERS Safety Report 22065005 (Version 1)
Quarter: 2023Q1

REPORT INFORMATION
  Report Type: Spontaneous
  Country: US (occurrence: US)
  Receive Date: 20230306
  Receipt Date: 20230306
  Transmission Date: 20230417
  Serious: No
  Sender: FDA-Public Use
  Company Number: US-GLAXOSMITHKLINE-USCH2023008993

PATIENT
  Age: 72 Year
  Sex: Female

DRUGS (1)
  1. FLONASE SENSIMIST ALLERGY RELIEF [Suspect]
     Active Substance: FLUTICASONE FUROATE
     Indication: Hypersensitivity
     Dosage: UNK
     Dates: start: 20230206, end: 20230225

REACTIONS (3)
  - Nasal discomfort [Recovered/Resolved]
  - Epistaxis [Recovered/Resolved]
  - Periorbital swelling [Recovered/Resolved]

NARRATIVE: CASE EVENT DATE: 20230206
